FAERS Safety Report 23452407 (Version 1)
Quarter: 2024Q1

REPORT INFORMATION
  Report Type: Spontaneous
  Country: US (occurrence: US)
  Receive Date: 20240129
  Receipt Date: 20240129
  Transmission Date: 20240410
  Serious: No
  Sender: FDA-Public Use
  Company Number: US-GILEAD-2024-0660126

PATIENT
  Age: 60 Year
  Sex: Female

DRUGS (2)
  1. LENACAPAVIR [Suspect]
     Active Substance: LENACAPAVIR
     Indication: HIV infection
     Dosage: 927MG SUBCUTANEOUSLY EVERY 6 MONTHS
     Route: 058
     Dates: start: 202303
  2. EGRIFTA [Concomitant]
     Active Substance: TESAMORELIN ACETATE

REACTIONS (1)
  - Fat tissue increased [Not Recovered/Not Resolved]
